FAERS Safety Report 22537717 (Version 1)
Quarter: 2023Q2

REPORT INFORMATION
  Report Type: Spontaneous
  Country: US (occurrence: US)
  Receive Date: 20230608
  Receipt Date: 20230608
  Transmission Date: 20230722
  Serious: No
  Sender: FDA-Public Use
  Company Number: US-PFIZER INC-PV202300100285

PATIENT
  Age: 29 Year
  Sex: Male

DRUGS (1)
  1. BRAFTOVI [Suspect]
     Active Substance: ENCORAFENIB
     Dosage: UNK
     Route: 048
     Dates: start: 202212

REACTIONS (4)
  - Fatigue [Unknown]
  - Arthralgia [Unknown]
  - Nausea [Recovering/Resolving]
  - Intentional product misuse [Unknown]
